FAERS Safety Report 9962012 (Version 1)
Quarter: 2014Q1

REPORT INFORMATION
  Report Type: Report from Study
  Country: US (occurrence: US)
  Receive Date: 20140305
  Receipt Date: 20140305
  Transmission Date: 20141002
  Serious: No
  Sender: FDA-Public Use
  Company Number: US-ABBVIE-13P-163-1114785-00

PATIENT
  Age: 54 Year
  Sex: Female
  Weight: 61.29 kg

DRUGS (5)
  1. HUMIRA [Suspect]
     Indication: RHEUMATOID ARTHRITIS
     Route: 058
     Dates: start: 200908, end: 201303
  2. ENBREL [Suspect]
     Indication: RHEUMATOID ARTHRITIS
     Route: 050
     Dates: start: 201303, end: 20130627
  3. METHOTREXATE [Concomitant]
     Indication: RHEUMATOID ARTHRITIS
  4. FOLIC ACID [Concomitant]
     Indication: VITAMIN SUPPLEMENTATION
  5. PAXIL [Concomitant]
     Indication: DEPRESSION

REACTIONS (6)
  - Rhinorrhoea [Not Recovered/Not Resolved]
  - Drug ineffective [Not Recovered/Not Resolved]
  - Injection site mass [Not Recovered/Not Resolved]
  - Injection site pruritus [Not Recovered/Not Resolved]
  - Lacrimation increased [Not Recovered/Not Resolved]
  - Sneezing [Not Recovered/Not Resolved]
